FAERS Safety Report 4808363-X (Version None)
Quarter: 2005Q4

REPORT INFORMATION
  Report Type: 
  Country: None (occurrence: None)
  Receive Date: 20051020
  Receipt Date: 20051020
  Transmission Date: 20060501
  Serious: Yes (Hospitalization)
  Sender: FDA-Public Use
  Company Number: None

PATIENT
  Age: 75 Year
  Sex: Male

DRUGS (7)
  1. PSYLLIUM [Suspect]
     Indication: CONSTIPATION
     Dosage: 1 TEASPOONFUL QD
  2. INSULIN [Concomitant]
  3. HYDROCHLOROTHIAZIDE [Concomitant]
  4. OMEPRAZOLE [Concomitant]
  5. OXYBUTYNIN [Concomitant]
  6. TERAZOSIN HCL [Concomitant]
  7. LOPERAMIDE [Concomitant]

REACTIONS (3)
  - ANGIONEUROTIC OEDEMA [None]
  - DYSPNOEA [None]
  - SWELLING FACE [None]
